FAERS Safety Report 4553858-X (Version None)
Quarter: 2005Q1

REPORT INFORMATION
  Report Type: 
  Country: None (occurrence: None)
  Receive Date: 20050112
  Receipt Date: 20050112
  Transmission Date: 20050727
  Serious: Yes (Death)
  Sender: FDA-Public Use
  Company Number: None

PATIENT
  Age: 43 Year
  Sex: Male
  Weight: 77.1115 kg

DRUGS (2)
  1. WELLBUTRIN [Suspect]
     Indication: ANXIETY
     Dosage: UNKNOWN DOSE ONCE DAILY
     Dates: start: 20041202, end: 20041226
  2. SOMINEX [Concomitant]

REACTIONS (2)
  - COMPLETED SUICIDE [None]
  - IMPULSIVE BEHAVIOUR [None]
